FAERS Safety Report 12787518 (Version 2)
Quarter: 2016Q4

REPORT INFORMATION
  Report Type: Spontaneous
  Country: US (occurrence: US)
  Receive Date: 20160928
  Receipt Date: 20161109
  Transmission Date: 20170207
  Serious: Yes (Death, Hospitalization, Other)
  Sender: FDA-Public Use
  Company Number: US-GLAXOSMITHKLINE-US2016140935

PATIENT
  Age: 84 Year
  Sex: Male

DRUGS (4)
  1. LIPITOR [Concomitant]
     Active Substance: ATORVASTATIN CALCIUM
  2. TOPOTECAN [Concomitant]
     Active Substance: TOPOTECAN HYDROCHLORIDE
  3. JALYN [Suspect]
     Active Substance: DUTASTERIDE\TAMSULOSIN HYDROCHLORIDE
     Indication: PROSTATIC DISORDER
     Dosage: 1 DF, QD
     Route: 048
     Dates: start: 2006
  4. CARDIZEM [Concomitant]
     Active Substance: DILTIAZEM HYDROCHLORIDE

REACTIONS (6)
  - Arthralgia [Unknown]
  - Lung neoplasm malignant [Fatal]
  - Renal surgery [Unknown]
  - Arthropathy [Recovered/Resolved]
  - Walking disability [Unknown]
  - Lymphoma [Recovered/Resolved with Sequelae]

NARRATIVE: CASE EVENT DATE: 201411
